FAERS Safety Report 14907863 (Version 4)
Quarter: 2018Q3

REPORT INFORMATION
  Report Type: Report from Study
  Country: BR (occurrence: BR)
  Receive Date: 20180517
  Receipt Date: 20180904
  Transmission Date: 20181010
  Serious: Yes (Other)
  Sender: FDA-Public Use
  Company Number: PHHY2018BR008416

PATIENT
  Age: 15 Year
  Sex: Male
  Weight: 53 kg

DRUGS (1)
  1. OMNITROPE [Suspect]
     Active Substance: SOMATROPIN
     Indication: GROWTH RETARDATION
     Dosage: 2.70 MG, QD
     Route: 058
     Dates: start: 20180421, end: 20180502

REACTIONS (6)
  - Visual field defect [Recovered/Resolved]
  - Intracranial pressure increased [Not Recovered/Not Resolved]
  - CSF cell count increased [Unknown]
  - Headache [Recovered/Resolved]
  - Vision blurred [Unknown]
  - Papilloedema [Unknown]

NARRATIVE: CASE EVENT DATE: 20180503
